FAERS Safety Report 7924380-5 (Version None)
Quarter: 2011Q4

REPORT INFORMATION
  Report Type: 
  Country: None (occurrence: None)
  Receive Date: 20111117
  Receipt Date: 20110321
  Transmission Date: 20120403
  Serious: No
  Sender: FDA-Public Use
  Company Number: US-AMGEN-USASP2011015254

PATIENT
  Age: 54 Year
  Sex: Female

DRUGS (2)
  1. TREXALL [Concomitant]
     Dosage: 4 MG, UNK
  2. ENBREL [Suspect]
     Indication: RHEUMATOID ARTHRITIS
     Dosage: 50 MG, QWK
     Dates: start: 20060914

REACTIONS (7)
  - ARTHRALGIA [None]
  - INJECTION SITE SWELLING [None]
  - DYSPHONIA [None]
  - PHARYNGITIS STREPTOCOCCAL [None]
  - COUGH [None]
  - INJECTION SITE PAIN [None]
  - INJECTION SITE NODULE [None]
